FAERS Safety Report 8967791 (Version 2)
Quarter: 2013Q1

REPORT INFORMATION
  Report Type: Spontaneous
  Country: US (occurrence: US)
  Receive Date: 20121217
  Receipt Date: 20130115
  Transmission Date: 20140127
  Serious: No
  Sender: FDA-Public Use
  Company Number: US-009507513-1212USA004694

PATIENT
  Age: 42 Year
  Sex: Male
  Weight: 91.16 kg

DRUGS (1)
  1. CLARITIN REDITABS [Suspect]
     Indication: RHINORRHOEA
     Dosage: UNK, QD
     Route: 048
     Dates: start: 20121124, end: 20121127

REACTIONS (1)
  - Drug ineffective [Unknown]
